FAERS Safety Report 4886027-4 (Version None)
Quarter: 2006Q1

REPORT INFORMATION
  Report Type: 
  Country: None (occurrence: None)
  Receive Date: 20060117
  Receipt Date: 20060109
  Transmission Date: 20060701
  Serious: Yes (Life-Threatening, Hospitalization)
  Sender: FDA-Public Use
  Company Number: 2005-04-0677

PATIENT
  Age: 67 Year
  Sex: Female

DRUGS (4)
  1. ISOSORBIDE MONONITRATE [Suspect]
     Indication: CARDIOVASCULAR DISORDER
     Dosage: 10 MG DAILY ORAL
     Route: 048
  2. BISOPROLOL FUMARATE [Suspect]
     Indication: CARDIOVASCULAR DISORDER
  3. BUMETANIDE [Suspect]
     Indication: CARDIOVASCULAR DISORDER
     Dosage: 1 MG
  4. ENALAPRIL MALEATE [Suspect]
     Indication: ANGIOPLASTY
     Dosage: 5 MG

REACTIONS (10)
  - BLOOD POTASSIUM INCREASED [None]
  - BLOOD PRESSURE DIASTOLIC DECREASED [None]
  - BRADYCARDIA [None]
  - DIALYSIS [None]
  - DIARRHOEA [None]
  - ELECTROCARDIOGRAM QRS COMPLEX PROLONGED [None]
  - ELECTROCARDIOGRAM T WAVE ABNORMAL [None]
  - LOSS OF CONSCIOUSNESS [None]
  - RENAL FAILURE ACUTE [None]
  - SHOCK [None]
